FAERS Safety Report 9196898 (Version 5)
Quarter: 2013Q3

REPORT INFORMATION
  Report Type: Report from Study
  Country: AU (occurrence: AU)
  Receive Date: 20130328
  Receipt Date: 20130705
  Transmission Date: 20140515
  Serious: Yes (Life-Threatening, Hospitalization, Other)
  Sender: FDA-Public Use
  Company Number: PHHY2013AU029596

PATIENT
  Age: 46 Year
  Sex: Male

DRUGS (13)
  1. CLOZARIL [Suspect]
     Indication: SCHIZOPHRENIA
     Dosage: 50 MG
     Dates: start: 19950808
  2. CLOZARIL [Suspect]
     Dosage: 400 MG
  3. CLOZARIL [Suspect]
     Dosage: 350 MG NOCTE
  4. CLOZARIL [Suspect]
     Dosage: 300 MG (NOCTE)
     Route: 048
  5. CLOMIPRAMINE [Concomitant]
     Indication: OBSESSIVE-COMPULSIVE DISORDER
     Dosage: 200 MG, NOCTE
     Route: 048
  6. CLOMIPRAMINE [Concomitant]
     Dosage: 150 MG
     Dates: start: 20130531, end: 20130604
  7. LAMOTRIGINE [Concomitant]
     Indication: SCHIZOAFFECTIVE DISORDER
     Dosage: 100 MG, BID
     Route: 048
  8. LAMOTRIGINE [Concomitant]
     Dosage: 100 MG, QD
     Route: 048
     Dates: start: 20130604
  9. VALPROATE SODIUM [Concomitant]
     Indication: SCHIZOAFFECTIVE DISORDER
     Dosage: UNK (1000 MANE, 1500 NOCTE)
     Route: 048
  10. VALPROATE SODIUM [Concomitant]
     Dosage: 750 MG, BID
     Dates: start: 20130604
  11. VALPROATE SODIUM [Concomitant]
     Dosage: 1000 (MANE + NOCTE)
     Dates: start: 20130624
  12. QUETIAPINE [Concomitant]
     Dosage: 100 MG (NOCTE)
  13. PANTOPRAZOLE [Concomitant]
     Indication: GASTROINTESTINAL INFECTION
     Dosage: UNK

REACTIONS (18)
  - Respiratory distress [Recovered/Resolved]
  - Malaise [Recovering/Resolving]
  - Sepsis [Recovering/Resolving]
  - Neutropenia [Recovered/Resolved]
  - Rectal neoplasm [Recovering/Resolving]
  - Haemoglobin decreased [Not Recovered/Not Resolved]
  - Haemorrhage [Unknown]
  - Platelet count decreased [Not Recovered/Not Resolved]
  - Infection [Unknown]
  - C-reactive protein increased [Not Recovered/Not Resolved]
  - Faecaloma [Unknown]
  - Platelet count increased [Not Recovered/Not Resolved]
  - White blood cell count decreased [Recovered/Resolved]
  - Antipsychotic drug level increased [Unknown]
  - Small intestinal obstruction [Recovering/Resolving]
  - Anaemia [Recovering/Resolving]
  - Red blood cell count decreased [Not Recovered/Not Resolved]
  - Incorrect dose administered [Unknown]
